FAERS Safety Report 9455934 (Version 3)
Quarter: 2019Q2

REPORT INFORMATION
  Report Type: Spontaneous
  Country: US (occurrence: US)
  Receive Date: 20130813
  Receipt Date: 20190419
  Transmission Date: 20190711
  Serious: Yes (Other)
  Sender: FDA-Public Use
  Company Number: US-PFIZER INC-2013233151

PATIENT
  Age: 68 Year
  Sex: Female
  Weight: 77 kg

DRUGS (4)
  1. AVASTIN [Concomitant]
     Active Substance: BEVACIZUMAB
     Indication: BLOOD CHOLESTEROL INCREASED
     Dosage: UNK
  2. CELEBREX [Suspect]
     Active Substance: CELECOXIB
     Indication: OSTEOARTHRITIS
     Dosage: UNKNOWN DOSE, ONCE DAILY
     Route: 048
  3. CELEBREX [Suspect]
     Active Substance: CELECOXIB
     Indication: CHONDROPATHY
     Dosage: 400 MG, DAILY (4 CAPSULES TAKEN BY MOUTH DAILY)
     Route: 048
  4. CELEBREX [Suspect]
     Active Substance: CELECOXIB
     Indication: JOINT INJURY
     Dosage: 100 MG, ONCE DAILY
     Route: 048

REACTIONS (6)
  - Carpal tunnel syndrome [Not Recovered/Not Resolved]
  - Arthropathy [Unknown]
  - Pain [Not Recovered/Not Resolved]
  - Intentional product use issue [Unknown]
  - Product dose omission [Not Recovered/Not Resolved]
  - Alopecia [Unknown]

NARRATIVE: CASE EVENT DATE: 2001
